FAERS Safety Report 20001663 (Version 1)
Quarter: 2021Q4

REPORT INFORMATION
  Report Type: Spontaneous
  Country: US (occurrence: US)
  Receive Date: 20211027
  Receipt Date: 20211027
  Transmission Date: 20220303
  Serious: Yes (Other)
  Sender: FDA-Public Use
  Company Number: None

PATIENT
  Age: 75 Year
  Sex: Female
  Weight: 63.45 kg

DRUGS (9)
  1. METFORMIN HYDROCHLORIDE [Suspect]
     Active Substance: METFORMIN HYDROCHLORIDE
     Indication: Diabetes mellitus
     Route: 048
     Dates: start: 20210925, end: 20211025
  2. CLONIDINE XR [Concomitant]
  3. COMPOUNDED NYSTATIN [Concomitant]
  4. VITAMIN B6 [Concomitant]
     Active Substance: PYRIDOXINE HYDROCHLORIDE
  5. VITAMIN B12 [Concomitant]
     Active Substance: CYANOCOBALAMIN
  6. COENZYME Q10 [Concomitant]
     Active Substance: DIETARY SUPPLEMENT\UBIDECARENONE
  7. OMEGA-3 FATTY ACIDS [Concomitant]
     Active Substance: OMEGA-3 FATTY ACIDS
  8. A-RED2 [Concomitant]
  9. HIGH DOSE D3 [Concomitant]

REACTIONS (10)
  - Heart rate increased [None]
  - Oedema [None]
  - Pruritus [None]
  - Urticaria [None]
  - Blood pressure increased [None]
  - Dizziness [None]
  - Migraine [None]
  - Urinary tract infection [None]
  - Joint swelling [None]
  - Rash [None]

NARRATIVE: CASE EVENT DATE: 20210925
